FAERS Safety Report 24718422 (Version 1)
Quarter: 2024Q4

REPORT INFORMATION
  Report Type: Spontaneous
  Country: US (occurrence: None)
  Receive Date: 20241210
  Receipt Date: 20241210
  Transmission Date: 20250115
  Serious: Yes (Hospitalization, Disabling)
  Sender: Public
  Company Number: None

PATIENT
  Age: 69 Year
  Sex: Male
  Weight: 200 kg

DRUGS (1)
  1. WARFARIN SODIUM [Suspect]
     Active Substance: WARFARIN SODIUM
     Route: 048

REACTIONS (3)
  - Haemorrhage [None]
  - Cerebral haemorrhage [None]
  - Cerebrovascular accident [None]

NARRATIVE: CASE EVENT DATE: 20220207
